FAERS Safety Report 8408097-9 (Version None)
Quarter: 2012Q2

REPORT INFORMATION
  Report Type: 
  Country: None (occurrence: None)
  Receive Date: 20120601
  Receipt Date: 20120601
  Transmission Date: 20120825
  Serious: Yes (Disabling)
  Sender: FDA-Public Use
  Company Number: None

PATIENT
  Sex: Male
  Weight: 88.4514 kg

DRUGS (2)
  1. LEVOFLOXACIN [Suspect]
     Indication: LUNG INFECTION
     Dosage: 500MG 1 A DAY 7 DAYS
     Dates: start: 20120402
  2. LEVOFLOXACIN [Suspect]
     Indication: LUNG INFECTION
     Dosage: 500MG 1 A DAY 7 DAYS
     Dates: start: 20120408

REACTIONS (1)
  - TENDONITIS [None]
